FAERS Safety Report 9952137 (Version 1)
Quarter: 2014Q1

REPORT INFORMATION
  Report Type: Spontaneous
  Country: US (occurrence: US)
  Receive Date: 20140304
  Receipt Date: 20140304
  Transmission Date: 20141002
  Serious: No
  Sender: FDA-Public Use
  Company Number: US-AMGEN-USASP2014005503

PATIENT
  Age: 59 Year
  Sex: Male
  Weight: 126.98 kg

DRUGS (11)
  1. ENBREL [Suspect]
     Indication: PRODUCT USED FOR UNKNOWN INDICATION
     Dosage: 50 MG, ONCE A WEEK
     Route: 058
  2. ALLEGRA [Concomitant]
     Dosage: 60 MG, UNK
  3. GLIPIZIDE [Concomitant]
     Dosage: 5 MG, UNK
  4. METFORMIN [Concomitant]
     Dosage: 750 MG, UNK
  5. PRAVASTATIN [Concomitant]
     Dosage: 10 MG, UNK
  6. FLEXERIL                           /00428402/ [Concomitant]
     Dosage: 10 MG, UNK
  7. PERCOCET                           /00867901/ [Concomitant]
     Dosage: 7.5 - 325, UNK, UNK
  8. VITAMIN D3 [Concomitant]
     Dosage: 5000 UNIT, UNK
  9. PREVACID [Concomitant]
     Dosage: 15 MG, UNK
  10. ARAVA [Concomitant]
     Dosage: 20 MG, UNK
  11. HYDROXYCHLOROQUINE [Concomitant]
     Dosage: 200 MG, UNK

REACTIONS (1)
  - Sinusitis [Unknown]
